FAERS Safety Report 15789107 (Version 4)
Quarter: 2020Q3

REPORT INFORMATION
  Report Type: Spontaneous
  Country: US (occurrence: US)
  Receive Date: 20190104
  Receipt Date: 20200721
  Transmission Date: 20201102
  Serious: No
  Sender: FDA-Public Use
  Company Number: US-PFIZER INC-2019004215

PATIENT
  Age: 82 Year
  Sex: Male

DRUGS (2)
  1. SILVER SULFADIAZINE. [Concomitant]
     Active Substance: SILVER SULFADIAZINE
     Dosage: UNK
     Dates: start: 20190102
  2. EUCRISA [Suspect]
     Active Substance: CRISABOROLE
     Indication: PERIPHERAL VENOUS DISEASE
     Dosage: 60 GM 2% PAP, APPLY BY TOPICAL ROUTE, TWICE A DAY TO AFFECTED AREA
     Route: 061
     Dates: start: 20180930

REACTIONS (7)
  - Application site erythema [Recovered/Resolved]
  - Skin exfoliation [Unknown]
  - Off label use [Unknown]
  - Application site pain [Recovered/Resolved]
  - Skin atrophy [Recovered/Resolved]
  - Product use in unapproved indication [Unknown]
  - Application site rash [Unknown]

NARRATIVE: CASE EVENT DATE: 20180930
